FAERS Safety Report 8228229-5 (Version None)
Quarter: 2012Q1

REPORT INFORMATION
  Report Type: 
  Country: None (occurrence: None)
  Receive Date: 20120322
  Receipt Date: 20111128
  Transmission Date: 20120608
  Serious: Yes (Other)
  Sender: FDA-Public Use
  Company Number: US-BRISTOL-MYERS SQUIBB COMPANY-16242158

PATIENT
  Age: 49 Year
  Sex: Female

DRUGS (3)
  1. ERBITUX [Suspect]
     Indication: COLON CANCER METASTATIC
     Dosage: 800MG/M2 IN10 400MG/M2 IN SEP11. START 27SEP11, HELD ON 11,18,25OCT11. RESTART ON 8NOV11 100MG/M2.
     Route: 042
     Dates: start: 20100101
  2. IRINOTECAN HCL [Concomitant]
     Dates: start: 20110927
  3. AVASTIN [Concomitant]
     Dates: start: 20110927

REACTIONS (1)
  - DERMATITIS [None]
